FAERS Safety Report 6712870-2 (Version None)
Quarter: 2010Q2

REPORT INFORMATION
  Report Type: 
  Country: None (occurrence: None)
  Receive Date: 20100426
  Receipt Date: 20091130
  Transmission Date: 20101027
  Serious: Yes (Hospitalization)
  Sender: FDA-Public Use
  Company Number: 2008BI026576

PATIENT
  Sex: Female

DRUGS (4)
  1. TYSABRI [Suspect]
     Indication: MULTIPLE SCLEROSIS
     Dosage: 300 MG;QM;IV
     Route: 042
     Dates: start: 20070801
  2. AVONEX [Concomitant]
  3. REBIF [Concomitant]
  4. COPAXONE [Concomitant]

REACTIONS (4)
  - BLOOD URINE PRESENT [None]
  - GASTROINTESTINAL DISORDER [None]
  - HERNIA [None]
  - MULTIPLE SCLEROSIS [None]
